FAERS Safety Report 4544009-6 (Version None)
Quarter: 2005Q1

REPORT INFORMATION
  Report Type: 
  Country: None (occurrence: None)
  Receive Date: 20050104
  Receipt Date: 20041223
  Transmission Date: 20050727
  Serious: Yes (Other)
  Sender: FDA-Public Use
  Company Number: GB-BRISTOL-MYERS SQUIBB COMPANY-12804522

PATIENT
  Sex: Female
  Weight: 52 kg

DRUGS (5)
  1. KENALOG [Suspect]
     Indication: MACULAR DEGENERATION
     Dates: start: 20040902
  2. FOSAMAX [Concomitant]
     Route: 048
  3. CO-CODAMOL [Concomitant]
     Route: 048
  4. ERGOCALCIFEROL [Concomitant]
     Route: 048
  5. VISUDYNE [Concomitant]

REACTIONS (1)
  - NECROTISING SCLERITIS [None]
